FAERS Safety Report 25256353 (Version 2)
Quarter: 2025Q2

REPORT INFORMATION
  Report Type: Spontaneous
  Country: US (occurrence: US)
  Receive Date: 20250430
  Receipt Date: 20250623
  Transmission Date: 20250716
  Serious: No
  Sender: BAYER HEALTHCARE PHARMACEUTICALS INC.
  Company Number: US-BAYER-2025A056315

PATIENT
  Age: 41 Year
  Sex: Male

DRUGS (1)
  1. JIVI [Suspect]
     Active Substance: DAMOCTOCOG ALFA PEGOL
     Indication: Intermenstrual bleeding
     Dosage: JIVI 1999 UNITS, INFUSE 3700 UNITS (+/- 10%) ONCE A WEEK AND AS NEEDED FOR
     Dates: start: 20250423

REACTIONS (2)
  - Product dose omission issue [Unknown]
  - Product dose omission issue [None]

NARRATIVE: CASE EVENT DATE: 20250423
